FAERS Safety Report 18585686 (Version 2)
Quarter: 2020Q4

REPORT INFORMATION
  Report Type: Spontaneous
  Country: US (occurrence: US)
  Receive Date: 20201207
  Receipt Date: 20201224
  Transmission Date: 20210114
  Serious: No
  Sender: FDA-Public Use
  Company Number: US-TAKEDA-2020TUS054595

PATIENT
  Age: 74 Year
  Sex: Female
  Weight: 71.66 kg

DRUGS (26)
  1. EPINEPHRINE. [Concomitant]
     Active Substance: EPINEPHRINE
  2. SPIRONOLACTONE. [Concomitant]
     Active Substance: SPIRONOLACTONE
  3. NITROGLYCERIN. [Concomitant]
     Active Substance: NITROGLYCERIN
  4. HEPARIN [Concomitant]
     Active Substance: HEPARIN SODIUM
  5. ACETAMINOPHEN. [Concomitant]
     Active Substance: ACETAMINOPHEN
  6. GAMMAGARD LIQUID [Suspect]
     Active Substance: HUMAN IMMUNOGLOBULIN G
     Indication: POLYMYOSITIS
     Dosage: 50 MILLIGRAM, Q6WEEKS
     Route: 065
     Dates: start: 20200620
  7. LOSARTAN. [Concomitant]
     Active Substance: LOSARTAN
  8. PNEUMOVAX 23 [Concomitant]
     Active Substance: PNEUMOCOCCAL VACCINE, POLYVALENT 23
  9. FLUBLOK QUADRIVALENT NOS [Concomitant]
     Active Substance: INFLUENZA VIRUS VACCINE
  10. NORMAL SALINE [Concomitant]
     Active Substance: SODIUM CHLORIDE
  11. METFORMIN [Concomitant]
     Active Substance: METFORMIN HYDROCHLORIDE
  12. GLIMEPIRIDE. [Concomitant]
     Active Substance: GLIMEPIRIDE
  13. CELLCEPT [Concomitant]
     Active Substance: MYCOPHENOLATE MOFETIL\MYCOPHENOLATE MOFETIL HYDROCHLORIDE
  14. SODIUM CHLORIDE. [Concomitant]
     Active Substance: SODIUM CHLORIDE
  15. ASPIRIN (E.C.) [Concomitant]
     Active Substance: ASPIRIN
  16. TYLENOL 8HR [Concomitant]
     Active Substance: ACETAMINOPHEN
  17. OMEPRAZOLE. [Concomitant]
     Active Substance: OMEPRAZOLE
  18. FISH OIL [Concomitant]
     Active Substance: FISH OIL
  19. DIPHENHYDRAMINE. [Concomitant]
     Active Substance: DIPHENHYDRAMINE
  20. LIDOCAINE. [Concomitant]
     Active Substance: LIDOCAINE
  21. CHOLECALCIFEROL [Concomitant]
     Active Substance: CHOLECALCIFEROL
  22. GAMMAGARD LIQUID [Suspect]
     Active Substance: HUMAN IMMUNOGLOBULIN G
     Dosage: 60 GRAM, Q7WEEKS
     Route: 065
     Dates: start: 20200620
  23. FLUOCINOLONE [Concomitant]
     Active Substance: FLUOCINOLONE
  24. METOPROLOL. [Concomitant]
     Active Substance: METOPROLOL
  25. LANSOPRAZOLE. [Concomitant]
     Active Substance: LANSOPRAZOLE
  26. AMLODIPINE [Concomitant]
     Active Substance: AMLODIPINE BESYLATE

REACTIONS (2)
  - Headache [Unknown]
  - COVID-19 [Unknown]

NARRATIVE: CASE EVENT DATE: 20201112
